FAERS Safety Report 9795115 (Version 2)
Quarter: 2014Q1

REPORT INFORMATION
  Report Type: Spontaneous
  Country: US (occurrence: US)
  Receive Date: 20140103
  Receipt Date: 20140122
  Transmission Date: 20141002
  Serious: Yes (Life-Threatening)
  Sender: FDA-Public Use
  Company Number: US-ROCHE-1322953

PATIENT
  Sex: Male

DRUGS (2)
  1. ERIVEDGE [Suspect]
     Indication: BASAL CELL NAEVUS SYNDROME
     Dosage: FOR 6 MONTHS, D/C
     Route: 048
     Dates: start: 20120906, end: 20120922
  2. ALDARA [Concomitant]
     Indication: BASAL CELL NAEVUS SYNDROME
     Route: 061
     Dates: start: 2010

REACTIONS (4)
  - Gastric cancer [Not Recovered/Not Resolved]
  - Gastrointestinal disorder [Unknown]
  - Dysgeusia [Unknown]
  - Alopecia [Unknown]
